FAERS Safety Report 17525915 (Version 1)
Quarter: 2020Q1

REPORT INFORMATION
  Report Type: Spontaneous
  Country: US (occurrence: US)
  Receive Date: 20200310
  Receipt Date: 20200310
  Transmission Date: 20200409
  Serious: No
  Sender: FDA-Public Use
  Company Number: US-TEVA-2020-US-1196892

PATIENT
  Sex: Male

DRUGS (4)
  1. HCTZ [Suspect]
     Active Substance: HYDROCHLOROTHIAZIDE
     Indication: ANXIETY
     Route: 065
  2. CLONAZEPAM. [Concomitant]
     Active Substance: CLONAZEPAM
     Route: 065
  3. CLONIDINE. [Suspect]
     Active Substance: CLONIDINE
     Indication: ANXIETY
     Route: 065
  4. BUPROPION. [Concomitant]
     Active Substance: BUPROPION
     Route: 065

REACTIONS (1)
  - Intentional product misuse [Unknown]
